FAERS Safety Report 8492869-9 (Version None)
Quarter: 2012Q3

REPORT INFORMATION
  Report Type: 
  Country: None (occurrence: None)
  Receive Date: 20120706
  Receipt Date: 20120629
  Transmission Date: 20120928
  Serious: Yes (Other)
  Sender: FDA-Public Use
  Company Number: MX-JNJFOC-20120701655

PATIENT
  Sex: Female

DRUGS (1)
  1. ELEQUINE [Suspect]
     Indication: PRODUCT USED FOR UNKNOWN INDICATION
     Route: 042
     Dates: start: 20120622

REACTIONS (4)
  - HYPERTENSION [None]
  - CHILLS [None]
  - OROPHARYNGEAL PAIN [None]
  - TACHYCARDIA [None]
